FAERS Safety Report 7027568-3 (Version None)
Quarter: 2010Q4

REPORT INFORMATION
  Report Type: 
  Country: None (occurrence: None)
  Receive Date: 20101004
  Receipt Date: 20100920
  Transmission Date: 20110411
  Serious: Yes (Other)
  Sender: FDA-Public Use
  Company Number: US-MYLANLABS-2010S1017224

PATIENT
  Age: 45 Year
  Sex: Male

DRUGS (4)
  1. ANTI-THYMOCYTE GLOBULIN NOS [Suspect]
     Indication: IMMUNOSUPPRESSION
     Route: 065
  2. MYCOPHENOLATE MOFETIL [Suspect]
     Indication: IMMUNOSUPPRESSION
     Route: 065
  3. TACROLIMUS [Suspect]
     Indication: IMMUNOSUPPRESSION
     Route: 065
  4. SOLU-MEDROL [Suspect]
     Indication: TRANSPLANT REJECTION
     Dosage: PULSE THERAPY
     Route: 042
     Dates: start: 20090101

REACTIONS (2)
  - DIARRHOEA [None]
  - MALACOPLAKIA GASTROINTESTINAL [None]
